FAERS Safety Report 9349698 (Version 3)
Quarter: 2014Q1

REPORT INFORMATION
  Report Type: Report from Study
  Country: JP (occurrence: JP)
  Receive Date: 20130614
  Receipt Date: 20140205
  Transmission Date: 20141002
  Serious: Yes (Congenital Anomaly, Other)
  Sender: FDA-Public Use
  Company Number: JP-009507513-1305JPN007467

PATIENT
  Age: 30 Year
  Sex: Female

DRUGS (7)
  1. GANIRELIX ACETATE [Suspect]
     Indication: PREVENTION OF PREMATURE OVULATION
     Dosage: 0.25 MG, QD
     Route: 058
     Dates: start: 20111202, end: 20111204
  2. FOLLISTIM [Suspect]
     Indication: IN VITRO FERTILISATION
     Dosage: 225, UNDER 1000UNIT, QD
     Route: 058
     Dates: start: 20111127, end: 20111127
  3. FOLLISTIM [Suspect]
     Dosage: 150, UNDER 1000UNIT, QD
     Route: 058
     Dates: start: 20111128, end: 20111201
  4. GONADOTROPIN, CHORIONIC [Concomitant]
     Indication: OVULATION INDUCTION
     Dosage: 5 THOUSAND-MILLION UNIT, QD
     Route: 030
     Dates: start: 20111205, end: 20111205
  5. MENOTROPINS [Concomitant]
     Indication: IN VITRO FERTILISATION
     Dosage: 150, UNDER 1000UNIT, QD
     Route: 030
     Dates: start: 20111202, end: 20111205
  6. LUTORAL (CHLORMADINONE ACETATE) [Concomitant]
     Indication: IN VITRO FERTILISATION
     Dosage: 12 MG, DAILY
     Route: 048
     Dates: start: 20111212, end: 20111224
  7. PROGESTONE DEPOT [Concomitant]
     Indication: IN VITRO FERTILISATION
     Dosage: 125 MG, QD
     Route: 030
     Dates: start: 20111212, end: 20111212

REACTIONS (4)
  - Foetal death [Recovered/Resolved]
  - Uterine dilation and curettage [Recovered/Resolved]
  - Trisomy 13 [Unknown]
  - Maternal exposure during pregnancy [Recovered/Resolved]
